FAERS Safety Report 19697665 (Version 3)
Quarter: 2022Q2

REPORT INFORMATION
  Report Type: Report from Study
  Country: DE (occurrence: DE)
  Receive Date: 20210813
  Receipt Date: 20220627
  Transmission Date: 20220720
  Serious: Yes (Other)
  Sender: FDA-Public Use
  Company Number: DE-ARISTO PHARMA-IVAB2021020424

PATIENT
  Sex: Female

DRUGS (3)
  1. METOPROLOL [Suspect]
     Active Substance: METOPROLOL
     Indication: Supraventricular tachycardia
     Dosage: UNK
     Route: 065
  2. BISOPROLOL [Suspect]
     Active Substance: BISOPROLOL
     Indication: Supraventricular tachycardia
     Dosage: UNTIL GW 7+5
     Route: 065
  3. IVABRADINE [Suspect]
     Active Substance: IVABRADINE
     Indication: Supraventricular tachycardia
     Dosage: 15 MILLIGRAM ULTIL GW 7+5
     Route: 065

REACTIONS (6)
  - Polyhydramnios [Recovered/Resolved]
  - Contraindicated product administered [Unknown]
  - Maternal exposure during pregnancy [Recovered/Resolved]
  - Pre-eclampsia [Recovered/Resolved]
  - Premature rupture of membranes [Recovered/Resolved]
  - Off label use [Unknown]
